FAERS Safety Report 5119990-7 (Version None)
Quarter: 2006Q3

REPORT INFORMATION
  Report Type: 
  Country: None (occurrence: None)
  Receive Date: 20060929
  Receipt Date: 20060911
  Transmission Date: 20061208
  Serious: Yes (Other)
  Sender: FDA-Public Use
  Company Number: 2006111037

PATIENT
  Age: 81 Year
  Sex: Female
  Weight: 84.8226 kg

DRUGS (4)
  1. NEURONTIN [Suspect]
     Indication: PAIN
     Dosage: 900 MG (300 MG, 3 IN 1 D), ORAL
     Route: 048
     Dates: start: 20000101
  2. ALL OTHER THERAPEUTIC PRODUCTS (ALL OTHER THERAPEUTIC PRODUCTS) [Concomitant]
  3. OXYCODONE HYDROCHLORIDE AND ACETAMINOPHEN [Concomitant]
  4. CIPRALEX (ESCITALOPRAM) [Concomitant]

REACTIONS (7)
  - BALANCE DISORDER [None]
  - ILL-DEFINED DISORDER [None]
  - MENTAL DISORDER [None]
  - MONONEUROPATHY MULTIPLEX [None]
  - SUICIDAL IDEATION [None]
  - THINKING ABNORMAL [None]
  - TREATMENT NONCOMPLIANCE [None]
